FAERS Safety Report 10565066 (Version 2)
Quarter: 2015Q4

REPORT INFORMATION
  Report Type: Spontaneous
  Country: US (occurrence: US)
  Receive Date: 20141105
  Receipt Date: 20151109
  Transmission Date: 20160304
  Serious: No
  Sender: FDA-Public Use
  Company Number: US-BIOGENIDEC-2014BI113618

PATIENT
  Age: 40 Year
  Sex: Female

DRUGS (12)
  1. TYSABRI [Suspect]
     Active Substance: NATALIZUMAB
     Indication: PRODUCT USED FOR UNKNOWN INDICATION
     Route: 042
     Dates: end: 201403
  2. GABAPENTIN. [Concomitant]
     Active Substance: GABAPENTIN
  3. FLAXSEED [Concomitant]
     Active Substance: FLAX SEED
  4. TOPIRAMATE. [Concomitant]
     Active Substance: TOPIRAMATE
  5. MULTIVITAMIN [Concomitant]
     Active Substance: VITAMINS
  6. METFORMIN [Concomitant]
     Active Substance: METFORMIN HYDROCHLORIDE
  7. SERTRALINE [Concomitant]
     Active Substance: SERTRALINE HYDROCHLORIDE
  8. AMPYRA [Concomitant]
     Active Substance: DALFAMPRIDINE
     Indication: MULTIPLE SCLEROSIS
     Route: 048
     Dates: start: 20130315, end: 20150605
  9. NAPROSYN [Concomitant]
     Active Substance: NAPROXEN
  10. AMANTADINE [Concomitant]
     Active Substance: AMANTADINE
  11. TECFIDERA [Concomitant]
     Active Substance: DIMETHYL FUMARATE
  12. ASPIRIN. [Concomitant]
     Active Substance: ASPIRIN

REACTIONS (1)
  - Suicidal ideation [Unknown]
